FAERS Safety Report 4751659-0 (Version None)
Quarter: 2005Q3

REPORT INFORMATION
  Report Type: 
  Country: None (occurrence: None)
  Receive Date: 20050824
  Receipt Date: 20050602
  Transmission Date: 20060218
  Serious: Yes (Other)
  Sender: FDA-Public Use
  Company Number: PHEH2005US06274

PATIENT
  Age: 67 Year
  Sex: Female
  Weight: 83 kg

DRUGS (4)
  1. WELLBUTRIN [Concomitant]
     Indication: DEPRESSION
     Dates: start: 20040101
  2. VITAMINS [Concomitant]
  3. ASPIRIN [Concomitant]
     Dosage: UNK, PRN
  4. DIOVAN HCT [Suspect]

REACTIONS (6)
  - COUGH [None]
  - DEHYDRATION [None]
  - NAUSEA [None]
  - PAIN IN EXTREMITY [None]
  - PARAESTHESIA [None]
  - UPPER RESPIRATORY TRACT INFECTION [None]
